FAERS Safety Report 8384734-2 (Version None)
Quarter: 2012Q2

REPORT INFORMATION
  Report Type: 
  Country: None (occurrence: None)
  Receive Date: 20120524
  Receipt Date: 20120521
  Transmission Date: 20120825
  Serious: Yes (Other)
  Sender: FDA-Public Use
  Company Number: US-PFIZER INC-2012123535

PATIENT
  Sex: Female
  Weight: 97.959 kg

DRUGS (9)
  1. LYRICA [Suspect]
     Indication: SLEEP DISORDER
  2. GABAPENTIN [Concomitant]
     Indication: CONVULSION
     Dosage: UNK
  3. LIDODERM [Concomitant]
     Dosage: UNK, AS NEEDED
  4. GEODON [Suspect]
     Indication: DEPRESSION
     Dosage: 80 MG, 2X/DAY
     Route: 048
  5. LYRICA [Suspect]
     Indication: PAIN
     Dosage: 100 MG, 2X/DAY
     Route: 048
  6. BACLOFEN [Concomitant]
     Indication: SLEEP APNOEA SYNDROME
     Dosage: UNK
  7. SUMATRIPTAN [Concomitant]
     Indication: MIGRAINE
     Dosage: UNK
  8. GEODON [Suspect]
     Indication: BIPOLAR DISORDER
     Dosage: 60 MG, 2X/DAY
     Route: 048
  9. DILANTIN [Suspect]
     Indication: CONVULSION
     Dosage: 300 MG (THREE CAPSULES OF 100MG), 2X/DAY
     Route: 048

REACTIONS (6)
  - UTERINE DISORDER [None]
  - ABASIA [None]
  - ANAEMIA [None]
  - DRUG LEVEL DECREASED [None]
  - PAIN [None]
  - HYPOAESTHESIA [None]
